FAERS Safety Report 8924283 (Version 1)
Quarter: 2012Q4

REPORT INFORMATION
  Report Type: 
  Country: US (occurrence: US)
  Receive Date: 20121126
  Receipt Date: 20121126
  Transmission Date: 20130627
  Serious: No
  Sender: FDA-Public Use
  Company Number: US-PFIZER INC-2012290936

PATIENT
  Age: 75 Year
  Sex: Female

DRUGS (12)
  1. GENOTROPIN MQ [Suspect]
     Dosage: 0.2 mg, daily, 7injections/week
     Route: 058
  2. HUMULIN L [Concomitant]
     Dosage: U-100
  3. ZOCOR [Concomitant]
     Dosage: 10 mg, UNK
  4. PREDNISONE [Concomitant]
     Dosage: 1 mg, UNK
  5. SYNTHROID [Concomitant]
     Dosage: 50 ug, UNK
  6. METFORMIN [Concomitant]
     Dosage: 850 mg, UNK
  7. LISINOPRIL [Concomitant]
     Dosage: 5 mg, UNK
  8. OMEPRAZOLE [Concomitant]
     Dosage: 20 mg, UNK
  9. NOVOLOG FLEXPEN [Concomitant]
     Dosage: UNK
  10. LEVEMIR [Concomitant]
     Dosage: UNK
  11. FERROUS SULFATE [Concomitant]
     Dosage: 325 mg, UNK
  12. VITAMIN D [Concomitant]
     Dosage: 400 (as reported)

REACTIONS (1)
  - Arthralgia [Unknown]
